FAERS Safety Report 6267895-0 (Version None)
Quarter: 2009Q3

REPORT INFORMATION
  Report Type: 
  Country: None (occurrence: None)
  Receive Date: 20090710
  Receipt Date: 20090710
  Transmission Date: 20100115
  Serious: No
  Sender: FDA-Public Use
  Company Number: None

PATIENT
  Age: 52 Year
  Sex: Female
  Weight: 122.4712 kg

DRUGS (2)
  1. LEVAQUIN [Suspect]
     Indication: SINUSITIS
     Dosage: 500 MG ONCE A DAY PO
     Route: 048
     Dates: start: 20050609, end: 20090613
  2. LEVAQUIN [Suspect]
     Indication: UPPER RESPIRATORY TRACT INFECTION
     Dosage: 500 MG ONCE A DAY PO
     Route: 048
     Dates: start: 20050609, end: 20090613

REACTIONS (3)
  - AGEUSIA [None]
  - ANOSMIA [None]
  - ARTHRALGIA [None]
